FAERS Safety Report 22073766 (Version 1)
Quarter: 2023Q1

REPORT INFORMATION
  Report Type: Report from Study
  Country: US (occurrence: US)
  Receive Date: 20230308
  Receipt Date: 20230308
  Transmission Date: 20230418
  Serious: No
  Sender: FDA-Public Use
  Company Number: US-002147023-NVSC2023US047635

PATIENT
  Age: 52 Year
  Sex: Male

DRUGS (1)
  1. KESIMPTA [Suspect]
     Active Substance: OFATUMUMAB
     Indication: Multiple sclerosis
     Dosage: 20 MG, QMO (INJECT 0.4 ML) (1 PEN) (UNDER THE SKIN EVERY 30 DAYS)
     Route: 058

REACTIONS (1)
  - Fungal foot infection [Unknown]

NARRATIVE: CASE EVENT DATE: 20221101
